FAERS Safety Report 4377297-X (Version None)
Quarter: 2004Q2

REPORT INFORMATION
  Report Type: 
  Country: None (occurrence: None)
  Receive Date: 20040609
  Receipt Date: 20040309
  Transmission Date: 20050107
  Serious: No
  Sender: FDA-Public Use
  Company Number: 2004203231US

PATIENT
  Age: 73 Year
  Sex: Female

DRUGS (7)
  1. BEXTRA [Suspect]
     Indication: ARTHRALGIA
     Dosage: 10 MG, QD
     Dates: start: 20040305, end: 20040307
  2. METHOTREXATE [Concomitant]
  3. PREDNISONE [Concomitant]
  4. PREMARIN [Concomitant]
  5. MULTIVITAMINS (ERGOCALCIFEROL, RETINOL, PANTHENOL) [Concomitant]
  6. OCUVITE [Concomitant]
  7. FOLIC ACID [Concomitant]

REACTIONS (3)
  - ANXIETY [None]
  - DISTURBANCE IN ATTENTION [None]
  - INSOMNIA [None]
